FAERS Safety Report 7935710-2 (Version None)
Quarter: 2011Q4

REPORT INFORMATION
  Report Type: 
  Country: None (occurrence: None)
  Receive Date: 20111123
  Receipt Date: 20111114
  Transmission Date: 20120403
  Serious: Yes (Disabling, Other)
  Sender: FDA-Public Use
  Company Number: US-BAYER-2011-053868

PATIENT
  Age: 19 Year
  Sex: Female
  Weight: 68.934 kg

DRUGS (1)
  1. MIRENA [Suspect]
     Indication: CONTRACEPTION
     Dosage: 20 MCG/24HR, CONT
     Route: 015
     Dates: start: 20110511, end: 20110621

REACTIONS (14)
  - CONTUSION [None]
  - MIGRAINE [None]
  - DEVICE DISLOCATION [None]
  - ABDOMINAL PAIN [None]
  - BRUXISM [None]
  - FATIGUE [None]
  - DEVICE EXPULSION [None]
  - HYPOTENSION [None]
  - EMOTIONAL DISTRESS [None]
  - POST PROCEDURAL HAEMORRHAGE [None]
  - DIZZINESS [None]
  - ASTHENIA [None]
  - HEADACHE [None]
  - FEELING ABNORMAL [None]
